FAERS Safety Report 7039909-1 (Version None)
Quarter: 2010Q4

REPORT INFORMATION
  Report Type: 
  Country: None (occurrence: None)
  Receive Date: 20101012
  Receipt Date: 20100930
  Transmission Date: 20110411
  Serious: Yes (Other)
  Sender: FDA-Public Use
  Company Number: US-PFIZER INC-2010106130

PATIENT
  Sex: Female

DRUGS (1)
  1. TOVIAZ [Suspect]
     Indication: HYPERTONIC BLADDER
     Dosage: 20 MG, UNK
     Route: 048
     Dates: start: 20090901, end: 20100701

REACTIONS (2)
  - MEDICATION ERROR [None]
  - VISION BLURRED [None]
